FAERS Safety Report 21772796 (Version 1)
Quarter: 2022Q4

REPORT INFORMATION
  Report Type: Spontaneous
  Country: US (occurrence: US)
  Receive Date: 20221223
  Receipt Date: 20221223
  Transmission Date: 20230113
  Serious: No
  Sender: FDA-Public Use
  Company Number: US-ABBVIE-4247889

PATIENT
  Sex: Male

DRUGS (1)
  1. IMBRUVICA [Suspect]
     Active Substance: IBRUTINIB
     Indication: Product used for unknown indication
     Dosage: STRENGTH 140 MG? 2 CAPSULES BY MOUTH ONCE DAILY
     Route: 048
     Dates: start: 20220221

REACTIONS (3)
  - Pain [Unknown]
  - Balance disorder [Unknown]
  - Dizziness [Unknown]
